FAERS Safety Report 7334725-5 (Version None)
Quarter: 2011Q1

REPORT INFORMATION
  Report Type: 
  Country: None (occurrence: None)
  Receive Date: 20110223
  Receipt Date: 20110208
  Transmission Date: 20110831
  Serious: Yes (Death)
  Sender: FDA-Public Use
  Company Number: FK201100192

PATIENT
  Age: 54 Year
  Sex: Male

DRUGS (3)
  1. RITUXIMAB (RITUXIMAB) (RITUXIMAB) [Concomitant]
  2. MITOXANTRONE [Suspect]
     Indication: LYMPHOMA
  3. CYCLOPHOSPHAMIDE [Suspect]
     Indication: LYMPHOMA

REACTIONS (2)
  - ACUTE MYELOID LEUKAEMIA [None]
  - MYELODYSPLASTIC SYNDROME [None]
